FAERS Safety Report 9251342 (Version 1)
Quarter: 2013Q1

REPORT INFORMATION
  Report Type: Spontaneous
  Country: US (occurrence: None)
  Receive Date: 20130305
  Receipt Date: 20130305
  Transmission Date: 20140127
  Serious: Yes (Other)
  Sender: FDA-Public Use
  Company Number: 163-21880-12100513

PATIENT
  Age: 69 Year
  Sex: Male
  Weight: 66.68 kg

DRUGS (8)
  1. REVLIMID [Suspect]
     Indication: PLASMA CELL MYELOMA
     Dosage: 25 MG, 1 IN 1 D, PO
     Route: 048
     Dates: start: 200910
  2. COUMADIN (WARFARIN SODIUM) (UNKNOWN) [Concomitant]
  3. NEXIUM (ESOMEPRAZOLE) (UNKNOWN) [Concomitant]
  4. LIBRAX (LIBRAX) (UNKNOWN) [Concomitant]
  5. FLONASE (FLUTICASONE PROPIONATE) (UNKNOWN) [Concomitant]
  6. PEPTOBISMOL (BISMUTH SUBSALICYLATE) (UNKNOWN) [Concomitant]
  7. DEXAMETHASONE (DEXAMETHASONE) (UNKNOWN) [Concomitant]
  8. PRILOSEC (OMEPRAZOLE) (UNKNOWN) [Concomitant]

REACTIONS (1)
  - Thrombosis [None]
